FAERS Safety Report 4338931-3 (Version None)
Quarter: 2004Q1

REPORT INFORMATION
  Report Type: 
  Country: None (occurrence: None)
  Receive Date: 20040329
  Receipt Date: 20040212
  Transmission Date: 20041129
  Serious: No
  Sender: FDA-Public Use
  Company Number: USA040259237

PATIENT
  Sex: Male

DRUGS (2)
  1. STRATTERA [Suspect]
     Indication: ATTENTION DEFICIT/HYPERACTIVITY DISORDER
     Dosage: 40 MG/QD DAY
     Dates: start: 20040128
  2. ULTRAM [Concomitant]

REACTIONS (4)
  - LACRIMATION INCREASED [None]
  - PARANASAL SINUS HYPERSECRETION [None]
  - RHINORRHOEA [None]
  - SNEEZING [None]
